FAERS Safety Report 23829869 (Version 2)
Quarter: 2024Q2

REPORT INFORMATION
  Report Type: Spontaneous
  Country: DE (occurrence: DE)
  Receive Date: 20240508
  Receipt Date: 20240605
  Transmission Date: 20240715
  Serious: Yes (Other)
  Sender: FDA-Public Use
  Company Number: DE-AUROBINDO-AUR-APL-2024-021443

PATIENT
  Age: 70 Year
  Sex: Male
  Weight: 65.5 kg

DRUGS (3)
  1. AMOXICILLIN\CLAVULANIC ACID [Suspect]
     Active Substance: AMOXICILLIN\CLAVULANIC ACID
     Indication: Inflammation
     Dosage: 1 DOSAGE FORM, TWO TIMES A DAY(1 TABLET IN THE MORNING AND 1 TABLET IN THE EVENING),PACK DISCARDED,
     Route: 048
     Dates: start: 20240205, end: 20240215
  2. ESOMEPRAZOLE MAGNESIUM [Suspect]
     Active Substance: ESOMEPRAZOLE MAGNESIUM
     Indication: Gastrointestinal disorder
     Dosage: UNK, IN THE FIRST 4 DAYS 2 CAPSULES DAILY, THEREAFTER 1 CAPSULE DAILY
     Route: 048
     Dates: start: 20240312, end: 20240315
  3. CANDESARTAN [Concomitant]
     Active Substance: CANDESARTAN
     Indication: Hypertension
     Dosage: UNK, 20 YEARS AGO
     Route: 048

REACTIONS (4)
  - Gastrointestinal disorder [Recovered/Resolved]
  - Liver function test increased [Recovered/Resolved]
  - Jaundice [Recovered/Resolved]
  - Weight decreased [Recovering/Resolving]

NARRATIVE: CASE EVENT DATE: 20240301
